APPROVED DRUG PRODUCT: DOXEPIN HYDROCHLORIDE
Active Ingredient: DOXEPIN HYDROCHLORIDE
Strength: EQ 10MG BASE/ML
Dosage Form/Route: CONCENTRATE;ORAL
Application: A071609 | Product #001
Applicant: TEVA PHARMACEUTICALS USA
Approved: Nov 9, 1987 | RLD: No | RS: No | Type: DISCN